FAERS Safety Report 7540331-X (Version None)
Quarter: 2011Q2

REPORT INFORMATION
  Report Type: 
  Country: None (occurrence: None)
  Receive Date: 20110610
  Receipt Date: 20030404
  Transmission Date: 20111010
  Serious: Yes (Death, Hospitalization)
  Sender: FDA-Public Use
  Company Number: PHFR2003GB01350

PATIENT
  Sex: Male

DRUGS (6)
  1. VALPROATE SODIUM [Concomitant]
     Dosage: 2000MG/DAY
     Route: 048
     Dates: start: 20020701
  2. HYOSCINE [Concomitant]
     Dosage: 300 MG, QD
     Route: 058
  3. BENZHEXOL [Concomitant]
     Dosage: 4MG/DAY
     Route: 048
     Dates: start: 20030301
  4. HALOPERIDOL [Concomitant]
     Dosage: 20 MG, QD
     Route: 048
  5. CLOZAPINE [Suspect]
     Indication: SCHIZOPHRENIA
     Dosage: 700 MG/DAY
     Route: 048
     Dates: start: 19961017
  6. LAXATIVES [Concomitant]

REACTIONS (9)
  - INTESTINAL OBSTRUCTION [None]
  - WHITE BLOOD CELL COUNT INCREASED [None]
  - LOWER RESPIRATORY TRACT INFECTION [None]
  - NON-HODGKIN'S LYMPHOMA [None]
  - LYMPHOMA [None]
  - RESPIRATORY ARREST [None]
  - CONSTIPATION [None]
  - RESPIRATORY DISTRESS [None]
  - TUBERCULOSIS [None]
